FAERS Safety Report 25123326 (Version 1)
Quarter: 2025Q1

REPORT INFORMATION
  Report Type: Spontaneous
  Country: US (occurrence: US)
  Receive Date: 20250326
  Receipt Date: 20250326
  Transmission Date: 20250409
  Serious: No
  Sender: GRIFOLS
  Company Number: US-IGSA-BIG0031899

PATIENT
  Sex: Female
  Weight: 155 kg

DRUGS (17)
  1. PROLASTIN-C LIQUID [Suspect]
     Active Substance: .ALPHA.1-PROTEINASE INHIBITOR HUMAN
     Indication: Alpha-1 antitrypsin deficiency
     Dosage: 9531 MILLIGRAM, Q.WK.
     Route: 042
  2. FAMOTIDINE [Concomitant]
     Active Substance: FAMOTIDINE
  3. MELOXICAM [Concomitant]
     Active Substance: MELOXICAM
  4. VITAMIN B12 [Concomitant]
     Active Substance: CYANOCOBALAMIN
  5. DUPIXENT [Concomitant]
     Active Substance: DUPILUMAB
  6. TORSEMIDE [Concomitant]
     Active Substance: TORSEMIDE
  7. DICYCLOMINE HYDROCHLORIDE [Concomitant]
     Active Substance: DICYCLOMINE HYDROCHLORIDE
  8. BACLOFEN [Concomitant]
     Active Substance: BACLOFEN
  9. SPIRONOLACTONE [Concomitant]
     Active Substance: SPIRONOLACTONE
  10. LEVOTHYROXINE SODIUM [Concomitant]
     Active Substance: LEVOTHYROXINE SODIUM
  11. VITAMIN D3 [Concomitant]
     Active Substance: CHOLECALCIFEROL
  12. CALCIUM\CHOLECALCIFEROL [Concomitant]
     Active Substance: CALCIUM\CHOLECALCIFEROL
  13. OMEGA-3 FATTY ACIDS [Concomitant]
     Active Substance: OMEGA-3 FATTY ACIDS
  14. MAGNESIUM [Concomitant]
     Active Substance: MAGNESIUM
  15. LISINOPRIL [Concomitant]
     Active Substance: LISINOPRIL
  16. NITROGLYCERIN [Concomitant]
     Active Substance: NITROGLYCERIN
  17. OXYGEN [Concomitant]
     Active Substance: OXYGEN

REACTIONS (1)
  - Sinusitis [Unknown]
